FAERS Safety Report 6250736-5 (Version None)
Quarter: 2009Q2

REPORT INFORMATION
  Report Type: 
  Country: None (occurrence: None)
  Receive Date: 20090630
  Receipt Date: 20080825
  Transmission Date: 20091009
  Serious: No
  Sender: FDA-Public Use
  Company Number: US-ABBOTT-08P-163-0472501-00

PATIENT
  Sex: Female
  Weight: 74.91 kg

DRUGS (3)
  1. ZEMPLAR [Suspect]
     Indication: HYPERPARATHYROIDISM
     Route: 048
     Dates: start: 20080311
  2. DOCUSATE SODIUM [Concomitant]
     Indication: CONSTIPATION
     Route: 048
  3. MANY OTHER MEDICATIONS [Concomitant]
     Indication: DRUG USE FOR UNKNOWN INDICATION

REACTIONS (2)
  - MEMORY IMPAIRMENT [None]
  - OVERDOSE [None]
